FAERS Safety Report 8233310 (Version 9)
Quarter: 2013Q1

REPORT INFORMATION
  Report Type: Spontaneous
  Country: US (occurrence: None)
  Receive Date: 20111101
  Receipt Date: 20121009
  Transmission Date: 20140127
  Serious: Yes (Hospitalization, Other)
  Sender: FDA-Public Use
  Company Number: AUR-APL-2011-05596

PATIENT
  Age: 80 Year
  Sex: Female

DRUGS (8)
  1. CIPROFLOXACIN [Suspect]
     Indication: URINARY TRACT INFECTION
     Dosage: (250 MG,2 IN 1 D)
     Route: 048
     Dates: start: 20111018, end: 20111020
  2. COLCHICINE [Concomitant]
  3. PROTONIX [Concomitant]
  4. TENORMIN [Concomitant]
  5. ULORIC [Concomitant]
  6. RAVATIO [Concomitant]
  7. LASIX [Concomitant]
  8. CHLORCON [Concomitant]

REACTIONS (10)
  - Dysphagia [None]
  - Asthenia [None]
  - Product quality issue [None]
  - Incorrect storage of drug [None]
  - Herpes zoster [None]
  - Gait disturbance [None]
  - Wheezing [None]
  - Cough [None]
  - Herpes zoster [None]
  - Sialoadenitis [None]
